FAERS Safety Report 23184510 (Version 1)
Quarter: 2023Q4

REPORT INFORMATION
  Report Type: Spontaneous
  Country: US (occurrence: US)
  Receive Date: 20231115
  Receipt Date: 20231115
  Transmission Date: 20240110
  Serious: Yes (Other)
  Sender: FDA-Public Use
  Company Number: US-MSNLABS-2023MSNSPO01928

PATIENT

DRUGS (1)
  1. FEBUXOSTAT [Suspect]
     Active Substance: FEBUXOSTAT
     Indication: Product used for unknown indication
     Route: 048

REACTIONS (7)
  - Monoplegia [Unknown]
  - Musculoskeletal disorder [Unknown]
  - Gait inability [Unknown]
  - Dysstasia [Unknown]
  - Asthenia [Unknown]
  - Dizziness [Unknown]
  - Hypoaesthesia [Recovered/Resolved]
